FAERS Safety Report 10204073 (Version 3)
Quarter: 2014Q2

REPORT INFORMATION
  Report Type: Spontaneous
  Country: IT (occurrence: IT)
  Receive Date: 20140529
  Receipt Date: 20140613
  Transmission Date: 20141212
  Serious: Yes (Other)
  Sender: FDA-Public Use
  Company Number: PHHY2014IT065553

PATIENT
  Age: 11 Year
  Sex: Male
  Weight: 50 kg

DRUGS (1)
  1. RITALIN [Suspect]
     Indication: ATTENTION DEFICIT/HYPERACTIVITY DISORDER
     Dosage: 10 MG, UNK (TOTAL)
     Route: 048
     Dates: start: 20140522, end: 20140522

REACTIONS (2)
  - Confusional state [Recovered/Resolved]
  - Somnolence [Recovered/Resolved]
